FAERS Safety Report 8620841-4 (Version None)
Quarter: 2012Q3

REPORT INFORMATION
  Report Type: 
  Country: None (occurrence: None)
  Receive Date: 20120824
  Receipt Date: 20120817
  Transmission Date: 20120928
  Serious: Yes (Other)
  Sender: FDA-Public Use
  Company Number: PHHY2012GB071360

PATIENT
  Sex: Male

DRUGS (2)
  1. VALIUM [Interacting]
     Dosage: UNK
  2. PROPRANOLOL [Suspect]
     Dosage: UNK

REACTIONS (4)
  - GENERAL PHYSICAL HEALTH DETERIORATION [None]
  - MENTAL IMPAIRMENT [None]
  - DRUG INTERACTION [None]
  - FEELING ABNORMAL [None]
